FAERS Safety Report 8138245-X (Version None)
Quarter: 2012Q1

REPORT INFORMATION
  Report Type: 
  Country: None (occurrence: None)
  Receive Date: 20120213
  Receipt Date: 20120206
  Transmission Date: 20120608
  Serious: Yes (Hospitalization)
  Sender: FDA-Public Use
  Company Number: 7111574

PATIENT
  Age: 65 Year
  Sex: Male

DRUGS (8)
  1. PREVISCAN (FLUINDIONE) (20 MG, TABLET) (FLUINDONE) [Suspect]
     Indication: PRODUCT USED FOR UNKNOWN INDICATION
     Dosage: 0.1429 DF (0.5 DF, 2 IN 1 WK), ORAL
     Route: 048
  2. SYMBICORT [Suspect]
     Indication: PRODUCT USED FOR UNKNOWN INDICATION
     Dosage: 2 DF (2 DF, 1 IN 1 D), RESPIRATORY INHALATION
     Route: 055
  3. REPAGLINIDE [Suspect]
     Indication: PRODUCT USED FOR UNKNOWN INDICATION
     Dosage: 3 DF (1 DF, 3 IN 1 D), ORAL
     Route: 048
  4. LEVOTHYROXINE SODIUM [Suspect]
     Indication: PRODUCT USED FOR UNKNOWN INDICATION
     Dosage: 1.5 DF (1.5 DF, 1 IN 1 D), ORAL
     Route: 048
  5. EZETIMIBE [Suspect]
     Indication: PRODUCT USED FOR UNKNOWN INDICATION
     Dosage: 1 DF (1 DF, 1 IN 1 D), ORAL
     Route: 048
  6. VERAPAMIL [Suspect]
     Indication: PRODUCT USED FOR UNKNOWN INDICATION
     Dosage: 3 DF (1 DF, 3 IN 1 D), ORAL
     Route: 048
  7. IRBESARTAN [Suspect]
     Indication: PRODUCT USED FOR UNKNOWN INDICATION
     Dosage: 1 DF (1 DF, 1 IN 1 D), ORAL
     Route: 048
  8. INDAPAMIDE [Suspect]
     Indication: PRODUCT USED FOR UNKNOWN INDICATION
     Dosage: 1 DF (1 DF, 1 IN 1 D), ORAL
     Route: 048

REACTIONS (34)
  - RENAL FAILURE CHRONIC [None]
  - BUNDLE BRANCH BLOCK LEFT [None]
  - HYPOTENSION [None]
  - PLEURAL EFFUSION [None]
  - CARDIAC FAILURE [None]
  - INFERIOR VENA CAVA DILATATION [None]
  - LEFT VENTRICULAR END-DIASTOLIC PRESSURE INCREASED [None]
  - MITRAL VALVE INCOMPETENCE [None]
  - BLOOD DISORDER [None]
  - CYANOSIS [None]
  - PERICARDIAL EFFUSION [None]
  - SPLEEN DISORDER [None]
  - PANCYTOPENIA [None]
  - PROTEIN URINE PRESENT [None]
  - EJECTION FRACTION DECREASED [None]
  - INTRACARDIAC THROMBUS [None]
  - ISCHAEMIA [None]
  - LEUKOCYTOCLASTIC VASCULITIS [None]
  - GENERAL PHYSICAL CONDITION ABNORMAL [None]
  - ATRIAL FIBRILLATION [None]
  - VENTRICULAR HYPOKINESIA [None]
  - TOXOPLASMOSIS [None]
  - PARVOVIRUS B19 TEST POSITIVE [None]
  - EPSTEIN-BARR VIRUS TEST POSITIVE [None]
  - WEIGHT DECREASED [None]
  - ACUTE RESPIRATORY DISTRESS SYNDROME [None]
  - DILATATION ATRIAL [None]
  - BLOOD GASES ABNORMAL [None]
  - EOSINOPHILIA [None]
  - SEPTIC SHOCK [None]
  - STAPHYLOCOCCUS TEST POSITIVE [None]
  - PURPURA [None]
  - BLOOD URINE PRESENT [None]
  - PRODUCTIVE COUGH [None]
